FAERS Safety Report 8919797 (Version 3)
Quarter: 2013Q1

REPORT INFORMATION
  Report Type: Spontaneous
  Country: GE (occurrence: None)
  Receive Date: 20121114
  Receipt Date: 20121114
  Transmission Date: 20140127
  Serious: No
  Sender: FDA-Public Use
  Company Number: 1210GEO011012

PATIENT
  Age: 45 Year
  Sex: Female

DRUGS (1)
  1. CEDAX [Suspect]
     Indication: URINARY TRACT INFECTION
     Route: 048
     Dates: start: 20121002, end: 20121003

REACTIONS (2)
  - Hallucination [None]
  - Urticaria [None]
